FAERS Safety Report 5593591-9 (Version None)
Quarter: 2008Q1

REPORT INFORMATION
  Report Type: 
  Country: None (occurrence: None)
  Receive Date: 20080116
  Receipt Date: 20080111
  Transmission Date: 20080703
  Serious: Yes (Hospitalization, Other)
  Sender: FDA-Public Use
  Company Number: FR-BRISTOL-MYERS SQUIBB COMPANY-14038020

PATIENT
  Age: 59 Year
  Sex: Female

DRUGS (2)
  1. SINEMET [Suspect]
     Dates: start: 20071213, end: 20071213
  2. COMTAN [Suspect]
     Dates: start: 20071213, end: 20071213

REACTIONS (7)
  - AGITATION [None]
  - CONFUSIONAL STATE [None]
  - HALLUCINATION [None]
  - INTENTIONAL OVERDOSE [None]
  - PERSECUTORY DELUSION [None]
  - SUICIDAL IDEATION [None]
  - YELLOW SKIN [None]
